FAERS Safety Report 18942032 (Version 2)
Quarter: 2021Q1

REPORT INFORMATION
  Report Type: Spontaneous
  Country: AT (occurrence: AT)
  Receive Date: 20210225
  Receipt Date: 20210325
  Transmission Date: 20210420
  Serious: Yes (Hospitalization)
  Sender: FDA-Public Use
  Company Number: PHHY2019AT146332

PATIENT
  Age: 62 Year
  Sex: Female
  Weight: 80 kg

DRUGS (57)
  1. TRASTUZUMAB EMTANSINE [Suspect]
     Active Substance: ADO-TRASTUZUMAB EMTANSINE
     Indication: HER2 POSITIVE BREAST CANCER
     Dosage: RECEIVED ON 24/APR/2018,  MOST RECENT DOSE PRIOR TO THE EVENT: 15/MAY/2018
     Route: 042
     Dates: start: 20171212, end: 20180424
  2. TRASTUZUMAB. [Suspect]
     Active Substance: TRASTUZUMAB
     Indication: HER2 POSITIVE BREAST CANCER
     Dosage: MOST RECENT DOSE: 21/NOV/2017
     Route: 042
     Dates: start: 20170306
  3. SUCRALFAT [Concomitant]
     Active Substance: SUCRALFATE
     Dosage: UNK (ONGOING = NOT CHECKED)
     Route: 065
     Dates: end: 20190907
  4. EMEND [Concomitant]
     Active Substance: APREPITANT
     Indication: PRODUCT USED FOR UNKNOWN INDICATION
     Dosage: UNK
     Route: 065
     Dates: start: 20180127, end: 20180313
  5. DEXAMETHASONE. [Concomitant]
     Active Substance: DEXAMETHASONE
     Indication: PRODUCT USED FOR UNKNOWN INDICATION
     Dosage: UNK
     Route: 065
     Dates: start: 20170829, end: 20180813
  6. DAFLON [Concomitant]
     Indication: PRODUCT USED FOR UNKNOWN INDICATION
     Dosage: UNK
     Route: 065
     Dates: end: 20190907
  7. HYDAL [Concomitant]
     Active Substance: HYDROMORPHONE HYDROCHLORIDE
     Dosage: UNK (ONGOING = NOT CHECKED)
     Route: 065
     Dates: start: 20181227, end: 20190907
  8. TRITTICO [Concomitant]
     Active Substance: TRAZODONE HYDROCHLORIDE
     Indication: PRODUCT USED FOR UNKNOWN INDICATION
     Dosage: UNK
     Route: 065
  9. ZYRTEC [Concomitant]
     Active Substance: CETIRIZINE HYDROCHLORIDE
     Indication: PRURITUS
     Dosage: ONGOING = CHECKED
     Route: 065
     Dates: start: 20170327, end: 20191003
  10. LOVENOX [Concomitant]
     Active Substance: ENOXAPARIN SODIUM
     Indication: PRODUCT USED FOR UNKNOWN INDICATION
     Dosage: UNK
     Route: 065
     Dates: start: 20190312, end: 20190315
  11. CLAVAMOX [Concomitant]
     Active Substance: AMOXICILLIN\CLAVULANATE POTASSIUM
     Indication: VASCULAR DEVICE INFECTION
     Dosage: UNK, QD
     Route: 065
     Dates: start: 20180215, end: 20180215
  12. CAPECITABINE. [Suspect]
     Active Substance: CAPECITABINE
     Dosage: 1000 MG
     Route: 048
     Dates: start: 20190617, end: 201909
  13. PASPERTIN [Concomitant]
     Indication: PRODUCT USED FOR UNKNOWN INDICATION
     Dosage: ONGOING = NOT CHECKED
     Route: 065
     Dates: start: 20171212, end: 20190907
  14. LIXIANA [Concomitant]
     Active Substance: EDOXABAN TOSYLATE
     Indication: PULMONARY EMBOLISM
     Dosage: ONGOING = NOT CHECKED
     Route: 065
     Dates: start: 20190315
  15. MIRTAZAPIN [Concomitant]
     Active Substance: MIRTAZAPINE
     Indication: PRODUCT USED FOR UNKNOWN INDICATION
     Dosage: ONGOING = CHECKED
     Route: 065
     Dates: start: 20190315, end: 20190907
  16. FENISTIL [Concomitant]
     Active Substance: DIMETHINDENE
     Indication: CHILLS
     Dosage: UNK
     Route: 065
     Dates: start: 20170306, end: 20170306
  17. FENISTIL [Concomitant]
     Active Substance: DIMETHINDENE
     Dosage: UNK
     Route: 065
     Dates: start: 20170327, end: 20180313
  18. ULSAL [Concomitant]
     Active Substance: RANITIDINE HYDROCHLORIDE
     Dosage: UNK
     Route: 065
     Dates: start: 20170327, end: 20180813
  19. MEXALEN [Concomitant]
     Active Substance: ACETAMINOPHEN
     Indication: PRODUCT USED FOR UNKNOWN INDICATION
     Dosage: UNK
     Route: 065
     Dates: start: 20170327, end: 20170327
  20. BAMBEC [Concomitant]
     Active Substance: BAMBUTEROL HYDROCHLORIDE
     Indication: PRODUCT USED FOR UNKNOWN INDICATION
     Dosage: UNK
     Route: 065
  21. LAPATINIB [Suspect]
     Active Substance: LAPATINIB
     Dosage: 750 MG,QD (MOST RECENT DOSE PRIOR TO ADVERSE EVENT: 16/JAN/2019)
     Route: 048
     Dates: start: 20190116, end: 20190206
  22. FORTECORTIN [Concomitant]
     Active Substance: DEXAMETHASONE
     Indication: PRODUCT USED FOR UNKNOWN INDICATION
     Dosage: UNK
     Route: 065
     Dates: start: 20170829, end: 20180813
  23. SUCRALFAT [Concomitant]
     Active Substance: SUCRALFATE
     Indication: PRODUCT USED FOR UNKNOWN INDICATION
     Dosage: UNK (ONGOING = CHECKED) (LAST ADMINISTRATION DATE: 07 SEP 2019)
     Route: 065
  24. HYDAL [Concomitant]
     Active Substance: HYDROMORPHONE HYDROCHLORIDE
     Indication: BACK PAIN
     Dosage: UNK
     Route: 065
     Dates: start: 20180628, end: 20190226
  25. PANTOLOC [Concomitant]
     Active Substance: PANTOPRAZOLE SODIUM
     Indication: PRODUCT USED FOR UNKNOWN INDICATION
     Dosage: UNK
     Route: 065
     Dates: start: 20170302
  26. CONCOR COR [Concomitant]
     Active Substance: BISOPROLOL FUMARATE
     Indication: PRODUCT USED FOR UNKNOWN INDICATION
     Dosage: UNK (ONGOING = CHECKED) (LAST ADMINISTRATION DATE: 07 SEP 2019)
     Route: 065
  27. KYTRIL [Concomitant]
     Active Substance: GRANISETRON HYDROCHLORIDE
     Indication: PRODUCT USED FOR UNKNOWN INDICATION
     Dosage: UNK
     Route: 065
     Dates: start: 20171212, end: 20180813
  28. KALIORAL [Concomitant]
     Indication: PRODUCT USED FOR UNKNOWN INDICATION
     Dosage: UNK
     Route: 065
  29. BUPRENORPHINE. [Concomitant]
     Active Substance: BUPRENORPHINE
     Indication: PRODUCT USED FOR UNKNOWN INDICATION
     Dosage: UNK
     Route: 065
  30. VINORELBINE [Suspect]
     Active Substance: VINORELBINE TARTRATE
     Indication: HER2 POSITIVE BREAST CANCER
     Dosage: 50 MG (TIME INTERVAL BETWEEN BEGINNING OF DRUG ADMINISTRATION AND START OF REACTION/EVENT:831(D) 831
     Route: 048
     Dates: start: 20170306, end: 20170530
  31. TRASTUZUMAB. [Suspect]
     Active Substance: TRASTUZUMAB
     Dosage: 600 MG, Q3W
     Route: 058
     Dates: start: 20200507, end: 20200507
  32. TRASTUZUMAB. [Suspect]
     Active Substance: TRASTUZUMAB
     Dosage: 600 MG, Q3W
     Route: 058
     Dates: start: 20190527, end: 20190617
  33. PERTUZUMAB. [Suspect]
     Active Substance: PERTUZUMAB
     Indication: HER2 POSITIVE BREAST CANCER
     Dosage: MOST RECENT DOSE ON 21 NOV 2017, TIME INTERVAL BETWEEN BEGINNING OF DRUG ADMINISTRATION AND START OF
     Route: 042
     Dates: start: 20170306
  34. NAVELBINE [Suspect]
     Active Substance: VINORELBINE TARTRATE
     Indication: HER2 POSITIVE BREAST CANCER
     Dosage: 50 MG, OT( MOST RECENT DOSE PRIOR TO THE EVENT: 27/JUN/2017) (TIME INTERVAL BETWEEN BEGINNING OF DRU
     Route: 048
     Dates: start: 20170530
  35. FORTECORTIN [Concomitant]
     Active Substance: DEXAMETHASONE
     Dosage: UNK
     Route: 065
     Dates: start: 20180127, end: 20180313
  36. HYDAL [Concomitant]
     Active Substance: HYDROMORPHONE HYDROCHLORIDE
     Dosage: UNK
     Route: 065
     Dates: start: 20180403, end: 20180628
  37. LYRICA [Concomitant]
     Active Substance: PREGABALIN
     Indication: BACK PAIN
     Dosage: UNK
     Route: 065
     Dates: start: 20181227, end: 20190226
  38. ZOLPIDEM [Concomitant]
     Active Substance: ZOLPIDEM TARTRATE
     Indication: PRODUCT USED FOR UNKNOWN INDICATION
     Dosage: UNK
     Route: 065
     Dates: start: 20190215, end: 20190315
  39. CAPECITABINE. [Suspect]
     Active Substance: CAPECITABINE
     Dosage: 1000 MG
     Route: 048
     Dates: start: 20190527, end: 201906
  40. LAPATINIB [Suspect]
     Active Substance: LAPATINIB
     Indication: HER2 POSITIVE BREAST CANCER
     Dosage: MOST RECENT DOSE ON 16/JAN/2019
     Route: 048
     Dates: start: 20181227
  41. VINORELBINE [Suspect]
     Active Substance: VINORELBINE TARTRATE
     Dosage: 50 MG
     Route: 048
     Dates: start: 20170627, end: 20170718
  42. TRASTUZUMAB. [Suspect]
     Active Substance: TRASTUZUMAB
     Dosage: 600 MG, Q3W
     Route: 058
     Dates: start: 20180904, end: 20180904
  43. TRASTUZUMAB. [Suspect]
     Active Substance: TRASTUZUMAB
     Dosage: 600 MG, Q3W
     Route: 058
     Dates: start: 20181023, end: 20190226
  44. ULSAL [Concomitant]
     Active Substance: RANITIDINE HYDROCHLORIDE
     Indication: CHILLS
     Dosage: UNK
     Route: 065
     Dates: start: 20170306, end: 20170306
  45. TRASTUZUMAB EMTANSINE [Suspect]
     Active Substance: ADO-TRASTUZUMAB EMTANSINE
     Dosage: 3.3 MG/M2, TIW
     Route: 042
     Dates: start: 20180515, end: 20180813
  46. TRASTUZUMAB. [Suspect]
     Active Substance: TRASTUZUMAB
     Dosage: UNK
     Route: 065
  47. LASIX [Concomitant]
     Active Substance: FUROSEMIDE
     Indication: PRODUCT USED FOR UNKNOWN INDICATION
     Dosage: UNK (ONGOING = CHECKED)
     Route: 065
     Dates: start: 20190907, end: 20190907
  48. FORTECORTIN [Concomitant]
     Active Substance: DEXAMETHASONE
     Dosage: ONGOING = CHECKED
     Route: 065
     Dates: start: 20190215, end: 20190907
  49. TEMESTA [Concomitant]
     Indication: PRODUCT USED FOR UNKNOWN INDICATION
     Dosage: ONGOING = CHECKED
     Route: 065
     Dates: start: 20190226
  50. LYRICA [Concomitant]
     Active Substance: PREGABALIN
     Dosage: UNK (ONGOING = CHECKED)
     Route: 065
  51. LAEVOLAC [Concomitant]
     Active Substance: LACTULOSE
     Indication: PRODUCT USED FOR UNKNOWN INDICATION
     Dosage: UNK
     Route: 065
     Dates: start: 20171212, end: 20190907
  52. SOLU?DACORTIN [Concomitant]
     Active Substance: PREDNISOLONE SODIUM SUCCINATE
     Indication: CHILLS
     Dosage: UNK
     Route: 065
     Dates: start: 20170306, end: 20170306
  53. AMOXICILLIN CLAVULANIC ACID [Concomitant]
     Active Substance: AMOXICILLIN\CLAVULANIC ACID
     Indication: VASCULAR DEVICE INFECTION
     Dosage: UNK
     Route: 065
     Dates: start: 20180215, end: 20180215
  54. VENLAFAB [Concomitant]
     Active Substance: VENLAFAXINE HYDROCHLORIDE
     Indication: PRODUCT USED FOR UNKNOWN INDICATION
     Dosage: ONGOING = NOT CHECKED
     Route: 065
     Dates: start: 20190315, end: 20190907
  55. CAPECITABINE. [Suspect]
     Active Substance: CAPECITABINE
     Indication: HER2 POSITIVE BREAST CANCER
     Dosage: 3500 MG,QD (RECEIVED DOSE ON 10 SEP 2018, MOST RECENT DOSE PRIOR TO THE EVENT: 27 MAY 2019, 17 JUN 2
     Route: 048
     Dates: start: 20180904, end: 20180910
  56. LIXIANA [Concomitant]
     Active Substance: EDOXABAN TOSYLATE
     Dosage: UNK
     Route: 065
     Dates: start: 20190315, end: 20190907
  57. LOVENOX [Concomitant]
     Active Substance: ENOXAPARIN SODIUM
     Dosage: UNK
     Route: 065
     Dates: start: 20180126, end: 20180208

REACTIONS (4)
  - Respiratory tract infection [Recovered/Resolved]
  - Dyspnoea [Not Recovered/Not Resolved]
  - Cough [Not Recovered/Not Resolved]
  - Dyspnoea [Not Recovered/Not Resolved]

NARRATIVE: CASE EVENT DATE: 20190415
